FAERS Safety Report 19040621 (Version 1)
Quarter: 2021Q1

REPORT INFORMATION
  Report Type: Report from Study
  Country: None (occurrence: AR)
  Receive Date: 20210323
  Receipt Date: 20210323
  Transmission Date: 20210420
  Serious: Yes (Other)
  Sender: FDA-Public Use
  Company Number: AR-ABBVIE-21K-007-3824810-00

PATIENT
  Age: 70 Year
  Sex: Male

DRUGS (1)
  1. HUMIRA [Suspect]
     Active Substance: ADALIMUMAB
     Indication: ANKYLOSING SPONDYLITIS
     Route: 058
     Dates: start: 20200221

REACTIONS (4)
  - Paraesthesia [Unknown]
  - Viral infection [Unknown]
  - Facial paralysis [Not Recovered/Not Resolved]
  - Hemianaesthesia [Unknown]

NARRATIVE: CASE EVENT DATE: 2021
